FAERS Safety Report 18626180 (Version 1)
Quarter: 2020Q4

REPORT INFORMATION
  Report Type: Spontaneous
  Country: US (occurrence: US)
  Receive Date: 20201216
  Receipt Date: 20201216
  Transmission Date: 20210114
  Serious: No
  Sender: FDA-Public Use
  Company Number: US-JNJFOC-20201038143

PATIENT
  Age: 38 Year
  Sex: Female

DRUGS (1)
  1. SPORANOX [Suspect]
     Active Substance: ITRACONAZOLE
     Indication: HISTOPLASMOSIS
     Route: 065

REACTIONS (1)
  - Exposure during pregnancy [Not Recovered/Not Resolved]
